FAERS Safety Report 12764160 (Version 1)
Quarter: 2016Q3

REPORT INFORMATION
  Report Type: Spontaneous
  Country: US (occurrence: US)
  Receive Date: 20160920
  Receipt Date: 20160920
  Transmission Date: 20161109
  Serious: Yes (Other)
  Sender: FDA-Public Use
  Company Number: US-HERITAGE PHARMACEUTICALS-2016HTG00232

PATIENT

DRUGS (2)
  1. NIFEDIPINE. [Suspect]
     Active Substance: NIFEDIPINE
  2. LABETOLOL [Concomitant]
     Active Substance: LABETALOL HYDROCHLORIDE
     Route: 065

REACTIONS (1)
  - Cerebrovascular accident [Unknown]
